FAERS Safety Report 24690687 (Version 1)
Quarter: 2024Q4

REPORT INFORMATION
  Report Type: Spontaneous
  Country: GB (occurrence: GB)
  Receive Date: 20241203
  Receipt Date: 20241203
  Transmission Date: 20250115
  Serious: Yes (Other)
  Sender: NOVA LABORATORIES LIMITED
  Company Number: GB-Nova Laboratories Limited-2166339

PATIENT
  Sex: Female

DRUGS (1)
  1. PURIXAN [Suspect]
     Active Substance: MERCAPTOPURINE
     Indication: Product used for unknown indication

REACTIONS (2)
  - Renal failure [Unknown]
  - Hepatic failure [Unknown]
